FAERS Safety Report 6409418-9 (Version None)
Quarter: 2009Q4

REPORT INFORMATION
  Report Type: 
  Country: None (occurrence: None)
  Receive Date: 20091021
  Receipt Date: 20091013
  Transmission Date: 20100525
  Serious: Yes (Hospitalization)
  Sender: FDA-Public Use
  Company Number: FR-AMGEN-US368443

PATIENT
  Age: 65 Year
  Sex: Female

DRUGS (1)
  1. ENBREL [Suspect]
     Indication: RHEUMATOID ARTHRITIS
     Dosage: UNKNOWN; TAKEN INTERMITTENTLY
     Route: 058
     Dates: start: 20060101, end: 20090101

REACTIONS (2)
  - CARDIAC FAILURE [None]
  - GUILLAIN-BARRE SYNDROME [None]
